FAERS Safety Report 8240429-7 (Version None)
Quarter: 2012Q1

REPORT INFORMATION
  Report Type: 
  Country: None (occurrence: None)
  Receive Date: 20120328
  Receipt Date: 20120301
  Transmission Date: 20120608
  Serious: Yes (Other)
  Sender: FDA-Public Use
  Company Number: DE-B.I. PHARMACEUTICALS,INC./RIDGEFIELD-2012-DE-00616DE

PATIENT
  Age: 73 Year
  Sex: Female
  Weight: 103 kg

DRUGS (10)
  1. ASPIRIN [Concomitant]
  2. ENALAPRIL MALEATE [Concomitant]
  3. LEVOTHYROXINE SODIUM [Concomitant]
  4. METOPROLOL SUCCINATE [Concomitant]
  5. METFORMIN HCL [Concomitant]
  6. PRADAXA [Suspect]
     Indication: ATRIAL FIBRILLATION
     Dates: start: 20120131
  7. DIGOXIN [Concomitant]
  8. THORASEMID [Concomitant]
  9. ALLOPURINOL [Concomitant]
  10. GABAPENTIN [Concomitant]

REACTIONS (1)
  - AGRANULOCYTOSIS [None]
